FAERS Safety Report 13625492 (Version 2)
Quarter: 2018Q2

REPORT INFORMATION
  Report Type: Spontaneous
  Country: US (occurrence: US)
  Receive Date: 20170608
  Receipt Date: 20180620
  Transmission Date: 20180711
  Serious: Yes (Death, Disabling, Other)
  Sender: FDA-Public Use
  Company Number: US-ASTRAZENECA-2017SE58148

PATIENT
  Age: 23794 Day
  Sex: Female
  Weight: 77 kg

DRUGS (23)
  1. LOSARTAN. [Concomitant]
     Active Substance: LOSARTAN
     Indication: HYPERTENSION
  2. FUROSEMIDE. [Concomitant]
     Active Substance: FUROSEMIDE
     Indication: FLUID RETENTION
     Route: 065
     Dates: start: 2003, end: 2014
  3. IPRATROPIUM [Concomitant]
     Active Substance: IPRATROPIUM
     Dosage: FOUR TIMES A DAY
     Route: 045
  4. LORTAB [Concomitant]
     Active Substance: ACETAMINOPHEN\HYDROCODONE BITARTRATE
     Dosage: 500.0MG AS REQUIRED
     Route: 065
  5. PHOSLO [Concomitant]
     Active Substance: CALCIUM ACETATE
     Route: 048
  6. NEXIUM [Suspect]
     Active Substance: ESOMEPRAZOLE MAGNESIUM
     Indication: GASTROOESOPHAGEAL REFLUX DISEASE
     Dosage: 40 MG
     Route: 048
     Dates: start: 200612, end: 2016
  7. ALLEGRA-D/CLARITIN-D [Concomitant]
     Indication: MULTIPLE ALLERGIES
     Route: 065
     Dates: start: 2009, end: 2010
  8. CHLORTHALIDONE. [Concomitant]
     Active Substance: CHLORTHALIDONE
     Indication: MULTIPLE ALLERGIES
     Route: 065
     Dates: start: 2003, end: 2016
  9. LASIX [Concomitant]
     Active Substance: FUROSEMIDE
     Dosage: 500.0MG AS REQUIRED
     Route: 048
  10. OMEPRAZOLE. [Suspect]
     Active Substance: OMEPRAZOLE
     Indication: GASTROOESOPHAGEAL REFLUX DISEASE
     Dosage: 40 MG
     Route: 048
     Dates: start: 200612, end: 2016
  11. VITAMIN E [Concomitant]
     Active Substance: .ALPHA.-TOCOPHEROL
     Indication: FLUID RETENTION
     Route: 065
     Dates: start: 2008, end: 2010
  12. COZAAR [Concomitant]
     Active Substance: LOSARTAN POTASSIUM
     Route: 048
  13. ATORVASTATIN [Concomitant]
     Active Substance: ATORVASTATIN
     Indication: BLOOD CHOLESTEROL INCREASED
     Route: 065
     Dates: start: 2012, end: 2016
  14. ASPIRIN. [Concomitant]
     Active Substance: ASPIRIN
     Indication: PAIN
     Route: 065
     Dates: start: 2008, end: 2010
  15. KLOR-CON [Concomitant]
     Active Substance: POTASSIUM CHLORIDE
     Indication: MULTIPLE ALLERGIES
     Route: 065
     Dates: start: 2003, end: 2010
  16. NEXIUM [Suspect]
     Active Substance: ESOMEPRAZOLE MAGNESIUM
     Indication: GASTROOESOPHAGEAL REFLUX DISEASE
     Route: 048
     Dates: start: 2006, end: 2016
  17. PREMARIN [Concomitant]
     Active Substance: ESTROGENS, CONJUGATED
     Indication: HOT FLUSH
     Route: 065
     Dates: start: 2004, end: 2016
  18. LIPITOR [Concomitant]
     Active Substance: ATORVASTATIN CALCIUM
     Indication: MULTIPLE ALLERGIES
     Route: 065
     Dates: start: 2005, end: 2012
  19. TRAMADOL. [Concomitant]
     Active Substance: TRAMADOL
     Indication: PAIN
     Route: 065
     Dates: start: 2010, end: 2014
  20. ATROVENT [Concomitant]
     Active Substance: IPRATROPIUM BROMIDE
     Indication: MULTIPLE ALLERGIES
     Route: 065
     Dates: start: 2003, end: 2011
  21. GLUCOTROL XL [Concomitant]
     Active Substance: GLIPIZIDE
     Dosage: 10 TABLET IQD
     Route: 048
  22. CLARITIN [Concomitant]
     Active Substance: LORATADINE
     Dosage: 500.0MG AS REQUIRED
     Route: 048
  23. NOVOLOG [Concomitant]
     Active Substance: INSULIN ASPART
     Indication: BLOOD INSULIN
     Route: 065
     Dates: start: 2012, end: 2016

REACTIONS (3)
  - End stage renal disease [Unknown]
  - Nephrogenic anaemia [Unknown]
  - Death [Fatal]

NARRATIVE: CASE EVENT DATE: 20141008
